FAERS Safety Report 18256977 (Version 2)
Quarter: 2020Q4

REPORT INFORMATION
  Report Type: Spontaneous
  Country: US (occurrence: US)
  Receive Date: 20200911
  Receipt Date: 20201113
  Transmission Date: 20210113
  Serious: No
  Sender: FDA-Public Use
  Company Number: US-ASTRAZENECA-2020SF15086

PATIENT
  Sex: Female

DRUGS (1)
  1. SYMBICORT [Suspect]
     Active Substance: BUDESONIDE\FORMOTEROL FUMARATE DIHYDRATE
     Dosage: 80 - 4.5 MCG TWO TIMES A DAY, 60 DOSES
     Route: 055
     Dates: start: 20200904

REACTIONS (6)
  - Candida infection [Unknown]
  - Device malfunction [Unknown]
  - Device use issue [Unknown]
  - Nervousness [Unknown]
  - Product use issue [Unknown]
  - Depressed mood [Unknown]

NARRATIVE: CASE EVENT DATE: 20200904
